FAERS Safety Report 9738994 (Version 1)
Quarter: 2013Q4

REPORT INFORMATION
  Report Type: Spontaneous
  Country: US (occurrence: US)
  Receive Date: 20131209
  Receipt Date: 20131209
  Transmission Date: 20140711
  Serious: No
  Sender: FDA-Public Use
  Company Number: US-009507513-1312USA001202

PATIENT
  Age: 66 Year
  Sex: Male

DRUGS (5)
  1. DULERA [Suspect]
     Indication: CHRONIC OBSTRUCTIVE PULMONARY DISEASE
     Dosage: 200/5 MCG. 2 PUFF, BID
     Route: 055
     Dates: start: 2012
  2. VICODIN [Concomitant]
  3. PROAIR (FLUTICASONE PROPIONATE) [Concomitant]
  4. PREDNISONE [Concomitant]
     Dosage: 20 MG, Q6H
     Route: 048
  5. ALBUTEROL SULFATE [Concomitant]
     Route: 048

REACTIONS (3)
  - Pruritus [Not Recovered/Not Resolved]
  - Rash [Not Recovered/Not Resolved]
  - Urticaria [Not Recovered/Not Resolved]
